FAERS Safety Report 9269094 (Version 1)
Quarter: 2013Q2

REPORT INFORMATION
  Report Type: Spontaneous
  Country: US (occurrence: None)
  Receive Date: 20130501
  Receipt Date: 20130501
  Transmission Date: 20140414
  Serious: Yes (Death)
  Sender: FDA-Public Use
  Company Number: 2013-139

PATIENT
  Age: 50 Year
  Sex: Male

DRUGS (1)
  1. FAZACLO (CLOZAPINE, USP) ODT (ORAL DISINTEGRATING TABLET) [Suspect]
     Indication: SCHIZOPHRENIA
     Route: 048
     Dates: start: 20110203, end: 201303

REACTIONS (1)
  - Myocardial infarction [None]
